FAERS Safety Report 8534895-7 (Version None)
Quarter: 2012Q3

REPORT INFORMATION
  Report Type: 
  Country: None (occurrence: None)
  Receive Date: 20120724
  Receipt Date: 20120719
  Transmission Date: 20120928
  Serious: Yes (Death, Life-Threatening, Hospitalization)
  Sender: FDA-Public Use
  Company Number: DE-ROCHE-1040030

PATIENT
  Age: 61 Year
  Sex: Female
  Weight: 62 kg

DRUGS (6)
  1. DIPYRONE INJ [Suspect]
     Indication: ARTHRALGIA
     Dosage: MIN 20 MAX DOSE 60
     Route: 065
     Dates: start: 20120120, end: 20120212
  2. ETORICOXIB [Concomitant]
     Dates: start: 20120120
  3. KALIUMIODID [Concomitant]
     Dates: start: 20000101
  4. LEVOTHYROXINE SODIUM [Concomitant]
     Dates: start: 20000101
  5. VEMURAFENIB [Suspect]
     Indication: MALIGNANT MELANOMA
     Route: 048
     Dates: start: 20111223, end: 20120213
  6. CITALOPRAM HYDROBROMIDE [Concomitant]
     Dates: start: 20090101

REACTIONS (3)
  - LEUKOPENIA [None]
  - PNEUMONIA [None]
  - AGRANULOCYTOSIS [None]
